FAERS Safety Report 8279457-4 (Version None)
Quarter: 2012Q2

REPORT INFORMATION
  Report Type: 
  Country: None (occurrence: None)
  Receive Date: 20120412
  Receipt Date: 20120221
  Transmission Date: 20120825
  Serious: No
  Sender: FDA-Public Use
  Company Number: US-ASTRAZENECA-2012SE12371

PATIENT
  Sex: Female

DRUGS (1)
  1. NEXIUM [Suspect]
     Route: 048

REACTIONS (8)
  - ABDOMINAL PAIN UPPER [None]
  - MUSCLE SPASMS [None]
  - ERUCTATION [None]
  - ADVERSE REACTION [None]
  - COLD SWEAT [None]
  - APHAGIA [None]
  - ASTHENIA [None]
  - PYREXIA [None]
